FAERS Safety Report 10048669 (Version 2)
Quarter: 2014Q2

REPORT INFORMATION
  Report Type: Spontaneous
  Country: SI (occurrence: SI)
  Receive Date: 20140331
  Receipt Date: 20140416
  Transmission Date: 20141212
  Serious: Yes (Other)
  Sender: FDA-Public Use
  Company Number: SI-AMGEN-SVNSP2014021894

PATIENT
  Age: 77 Year
  Sex: Female

DRUGS (17)
  1. PROLIA [Suspect]
     Indication: OSTEOPOROSIS POSTMENOPAUSAL
     Dosage: 60 MG, Q6MO
     Route: 058
     Dates: start: 20120511
  2. PLIVIT D3 [Concomitant]
  3. CALCIUM [Concomitant]
     Indication: SUPPLEMENTATION THERAPY
  4. AMLOPIN                            /00972401/ [Concomitant]
  5. ASPIRIN [Concomitant]
     Dosage: 100 UNK, UNK
  6. BIOPREXANIL                        /00790701/ [Concomitant]
  7. HELEX [Concomitant]
  8. LYRICA [Concomitant]
     Dosage: UNK UNK, AS NECESSARY
  9. MOVALIS [Concomitant]
  10. ZALDIAR [Concomitant]
  11. MOXOGAMMA [Concomitant]
  12. PREDUCTAL MV [Concomitant]
  13. PROCORALAN [Concomitant]
  14. SANVAL [Concomitant]
     Dosage: UNK UNK, AS NECESSARY
  15. TULIP                              /00435301/ [Concomitant]
  16. REMICADE [Concomitant]
     Indication: PSORIASIS
  17. METHOTREXATE [Concomitant]
     Indication: PSORIASIS
     Dosage: 2 TABLETS, BID

REACTIONS (2)
  - Rib fracture [Unknown]
  - Mobility decreased [Unknown]
